FAERS Safety Report 23527243 (Version 2)
Quarter: 2024Q1

REPORT INFORMATION
  Report Type: Spontaneous
  Country: IT (occurrence: IT)
  Receive Date: 20240215
  Receipt Date: 20240301
  Transmission Date: 20240409
  Serious: Yes (Hospitalization)
  Sender: FDA-Public Use
  Company Number: IT-ELI_LILLY_AND_COMPANY-IT202402004212

PATIENT
  Age: 72 Year
  Sex: Male
  Weight: 82 kg

DRUGS (1)
  1. IXEKIZUMAB [Suspect]
     Active Substance: IXEKIZUMAB
     Indication: Psoriatic arthropathy
     Dosage: TWO INJECTIONS 80 MG AT WEEK 0; ONE INJECTION 80 MG EERY 4 WEEKS
     Route: 065
     Dates: start: 202301

REACTIONS (1)
  - Central nervous system inflammation [Recovered/Resolved]

NARRATIVE: CASE EVENT DATE: 20230202
